FAERS Safety Report 5203465-0 (Version None)
Quarter: 2007Q1

REPORT INFORMATION
  Report Type: 
  Country: None (occurrence: None)
  Receive Date: 20070110
  Receipt Date: 20070103
  Transmission Date: 20070707
  Serious: Yes (Death, Hospitalization, Other)
  Sender: FDA-Public Use
  Company Number: US-BRISTOL-MYERS SQUIBB COMPANY-13630884

PATIENT
  Age: 64 Year
  Sex: Male
  Weight: 111 kg

DRUGS (3)
  1. CETUXIMAB [Suspect]
     Indication: NEOPLASM MALIGNANT
     Dosage: ARM 1: 400 MG/M2 IV FOR 120 MINUTES ON DAY 1, NO OTHER CHEMO OR RADIATION THAT DAY OR WEEK.
     Route: 042
     Dates: start: 20061030, end: 20061030
  2. DOCETAXEL [Suspect]
     Indication: NEOPLASM MALIGNANT
     Dosage: TOTAL DOSE: 32 MG
     Route: 042
     Dates: start: 20061030, end: 20061030
  3. RADIATION THERAPY [Suspect]
     Indication: NEOPLASM MALIGNANT
     Dosage: 60 GY (2GY/D) GIVEN TO INVOLVED AREAS OVER 5.5-6.5 WEEKS, TOTAL DOSE: 5992CGY NUMBER OF FRACTIONS:28
     Dates: start: 20061130, end: 20061130

REACTIONS (6)
  - DERMATITIS ACNEIFORM [None]
  - DYSARTHRIA [None]
  - DYSPNOEA [None]
  - MYOCARDIAL INFARCTION [None]
  - RADIATION SKIN INJURY [None]
  - WEIGHT DECREASED [None]
